FAERS Safety Report 6967394-4 (Version None)
Quarter: 2010Q3

REPORT INFORMATION
  Report Type: 
  Country: None (occurrence: None)
  Receive Date: 20100907
  Receipt Date: 20100825
  Transmission Date: 20110219
  Serious: Yes (Hospitalization)
  Sender: FDA-Public Use
  Company Number: PHHY2010US48419

PATIENT
  Sex: Female
  Weight: 54.55 kg

DRUGS (1)
  1. EXJADE [Suspect]
     Indication: MYELODYSPLASTIC SYNDROME
     Dosage: 1125 MG DAILY
     Route: 048

REACTIONS (2)
  - BACK PAIN [None]
  - PNEUMONIA [None]
